FAERS Safety Report 9288736 (Version 1)
Quarter: 2013Q2

REPORT INFORMATION
  Report Type: Spontaneous
  Country: US (occurrence: US)
  Receive Date: 20130514
  Receipt Date: 20130514
  Transmission Date: 20140414
  Serious: No
  Sender: FDA-Public Use
  Company Number: US-OPTIMER PHARMACEUTICALS, INC.-20110053

PATIENT
  Sex: 0

DRUGS (5)
  1. DIFICID [Suspect]
     Indication: CLOSTRIDIAL INFECTION
     Dosage: 200 MG, BID
     Route: 048
     Dates: start: 20111111, end: 20111111
  2. VANCOMYCIN [Concomitant]
     Indication: CLOSTRIDIAL INFECTION
     Dosage: 125 MG, QID
     Route: 048
     Dates: start: 20111028, end: 20111031
  3. ATIVAN [Concomitant]
     Indication: ANXIETY
     Dosage: 1 MG, PRN
     Route: 048
  4. LOTREL [Concomitant]
     Indication: HYPERTENSION
     Dosage: UNK
     Route: 048
  5. ZIAC [Concomitant]
     Indication: HYPERTENSION
     Dosage: UNK
     Route: 048

REACTIONS (3)
  - Burning sensation [Unknown]
  - Throat irritation [Unknown]
  - Diarrhoea [Not Recovered/Not Resolved]
